FAERS Safety Report 9596626 (Version 1)
Quarter: 2013Q4

REPORT INFORMATION
  Report Type: Spontaneous
  Country: US (occurrence: US)
  Receive Date: 20131004
  Receipt Date: 20131004
  Transmission Date: 20140711
  Serious: Yes (Other)
  Sender: FDA-Public Use
  Company Number: CHPA2013US015082

PATIENT
  Sex: Female

DRUGS (1)
  1. CONTROL PLP [Suspect]
     Indication: SMOKING CESSATION THERAPY
     Dosage: UNK, UNK
     Route: 062
     Dates: start: 201102, end: 201202

REACTIONS (4)
  - Polyp [Unknown]
  - Diverticulitis [Unknown]
  - Headache [Unknown]
  - Malaise [Unknown]
